FAERS Safety Report 15164948 (Version 1)
Quarter: 2018Q3

REPORT INFORMATION
  Report Type: Spontaneous
  Country: GB (occurrence: GB)
  Receive Date: 20180719
  Receipt Date: 20180719
  Transmission Date: 20181010
  Serious: Yes (Hospitalization)
  Sender: FDA-Public Use
  Company Number: GB-TEVA-2018-GB-924008

PATIENT
  Age: 83 Year
  Sex: Female

DRUGS (11)
  1. PHENOXYMETHYLPENICILLIN [Concomitant]
     Active Substance: PENICILLIN V
  2. ACETAZOLAMIDE. [Suspect]
     Active Substance: ACETAZOLAMIDE
     Indication: INTRAOCULAR PRESSURE INCREASED
     Dosage: 1000 MILLIGRAM DAILY;
     Route: 048
     Dates: start: 20180524, end: 20180527
  3. FUROSEMIDE. [Concomitant]
     Active Substance: FUROSEMIDE
  4. CLENIL MODULITE [Concomitant]
     Active Substance: BECLOMETHASONE DIPROPIONATE
  5. TILDIEM LA [Concomitant]
     Active Substance: DILTIAZEM HYDROCHLORIDE
  6. LEVOTHYROXINE. [Concomitant]
     Active Substance: LEVOTHYROXINE
  7. SALBUTAMOL [Concomitant]
     Active Substance: ALBUTEROL
  8. RAMIPRIL. [Concomitant]
     Active Substance: RAMIPRIL
  9. BRINZOLAMIDE [Suspect]
     Active Substance: BRINZOLAMIDE
     Indication: GLAUCOMA
     Dosage: 2 GTT DAILY; INTO AFFECTED EYES
     Route: 047
  10. NOVOMIX [Concomitant]
     Active Substance: INSULIN ASPART
  11. DOXAZOSIN [Concomitant]
     Active Substance: DOXAZOSIN\DOXAZOSIN MESYLATE

REACTIONS (5)
  - Confusional state [Unknown]
  - Asthenia [Unknown]
  - Sluggishness [Unknown]
  - Urine odour abnormal [Unknown]
  - Metabolic acidosis [Recovering/Resolving]

NARRATIVE: CASE EVENT DATE: 20180526
